FAERS Safety Report 7971513-0 (Version None)
Quarter: 2011Q4

REPORT INFORMATION
  Report Type: 
  Country: None (occurrence: None)
  Receive Date: 20111212
  Receipt Date: 20111129
  Transmission Date: 20120403
  Serious: Yes (Other)
  Sender: FDA-Public Use
  Company Number: US-ELI_LILLY_AND_COMPANY-US201111009074

PATIENT
  Age: 84 Year
  Sex: Female

DRUGS (3)
  1. LYRICA [Concomitant]
     Dosage: UNK
  2. CYMBALTA [Suspect]
     Dosage: UNK UNK, UNKNOWN
  3. CYMBALTA [Suspect]
     Indication: FIBROMYALGIA
     Dosage: 30 MG, QD

REACTIONS (4)
  - DIARRHOEA [None]
  - ABASIA [None]
  - FIBROMYALGIA [None]
  - DRUG INEFFECTIVE [None]
